FAERS Safety Report 17391722 (Version 3)
Quarter: 2020Q2

REPORT INFORMATION
  Report Type: Report from Study
  Country: US (occurrence: US)
  Receive Date: 20200207
  Receipt Date: 20200511
  Transmission Date: 20200713
  Serious: No
  Sender: FDA-Public Use
  Company Number: NVSC2020US031587

PATIENT
  Age: 79 Year
  Sex: Female

DRUGS (1)
  1. BEOVU [Suspect]
     Active Substance: BROLUCIZUMAB-DBLL
     Indication: NEOVASCULAR AGE-RELATED MACULAR DEGENERATION
     Dosage: UNK UNK, QMO (ONE SINGLE DOSE)
     Route: 047
     Dates: start: 20191230

REACTIONS (5)
  - Mydriasis [Unknown]
  - Injection site discomfort [Unknown]
  - Visual acuity reduced [Unknown]
  - Vitreous floaters [Unknown]
  - Foreign body in eye [Recovered/Resolved]

NARRATIVE: CASE EVENT DATE: 20191230
